FAERS Safety Report 4848998-1 (Version None)
Quarter: 2005Q4

REPORT INFORMATION
  Report Type: 
  Country: None (occurrence: None)
  Receive Date: 20051208
  Receipt Date: 20051201
  Transmission Date: 20060501
  Serious: Yes (Life-Threatening)
  Sender: FDA-Public Use
  Company Number: DE-MERCK-0512DEU00005

PATIENT
  Age: 79 Year
  Sex: Male

DRUGS (2)
  1. PRIMAXIN [Suspect]
     Indication: SPONDYLITIS
     Route: 041
     Dates: start: 20051129
  2. ANTIMICROBIAL (UNSPECIFIED) [Concomitant]
     Route: 065
     Dates: end: 20051101

REACTIONS (2)
  - ERYTHROPENIA [None]
  - THROMBOCYTOPENIA [None]
